FAERS Safety Report 10645512 (Version 1)
Quarter: 2014Q4

REPORT INFORMATION
  Report Type: Spontaneous
  Country: US (occurrence: US)
  Receive Date: 20141211
  Receipt Date: 20141211
  Transmission Date: 20150529
  Serious: No
  Sender: FDA-Public Use
  Company Number: US-JNJFOC-20141116992

PATIENT
  Sex: Female

DRUGS (3)
  1. INVEGA [Concomitant]
     Active Substance: PALIPERIDONE
     Route: 048
  2. INVEGA SUSTENNA [Suspect]
     Active Substance: PALIPERIDONE PALMITATE
     Indication: SCHIZOAFFECTIVE DISORDER
     Route: 030
  3. INVEGA SUSTENNA [Suspect]
     Active Substance: PALIPERIDONE PALMITATE
     Indication: SCHIZOAFFECTIVE DISORDER
     Route: 030

REACTIONS (5)
  - Product use issue [Unknown]
  - Adverse drug reaction [Unknown]
  - Drug ineffective [Unknown]
  - Condition aggravated [Unknown]
  - Inappropriate schedule of drug administration [Unknown]
